FAERS Safety Report 19705926 (Version 3)
Quarter: 2021Q4

REPORT INFORMATION
  Report Type: Spontaneous
  Country: MX (occurrence: None)
  Receive Date: 20210817
  Receipt Date: 20211108
  Transmission Date: 20220303
  Serious: Yes (Other)
  Sender: FDA-Public Use
  Company Number: MX-ROCHE-2890997

PATIENT
  Age: 55 Year
  Sex: Female

DRUGS (5)
  1. AVASTIN [Suspect]
     Active Substance: BEVACIZUMAB
     Indication: Ovarian cancer
     Route: 042
     Dates: start: 20210217
  2. CARBOPLATIN [Suspect]
     Active Substance: CARBOPLATIN
     Indication: Ovarian cancer
     Dosage: DOSE AND FREQUENCY WERE NOT REPORTED
     Route: 065
  3. DOCETAXEL [Suspect]
     Active Substance: DOCETAXEL
     Indication: Ovarian cancer
     Dosage: DOSE AND FREQUENCY WERE NOT REPORTED
     Route: 065
  4. OXALIPLATIN [Concomitant]
     Active Substance: OXALIPLATIN
     Indication: Ovarian cancer
     Dosage: DOSE AND FREQUENCY WERE NOT REPORTED
  5. CAPECITABINE [Concomitant]
     Active Substance: CAPECITABINE
     Indication: Ovarian cancer
     Dosage: DOSE AND FREQUENCY WERE NOT REPORTED
     Route: 048

REACTIONS (6)
  - Pulmonary oedema [Not Recovered/Not Resolved]
  - Thermal burn [Recovered/Resolved]
  - Malaise [Unknown]
  - Ageusia [Unknown]
  - Asthenia [Unknown]
  - Somnolence [Unknown]

NARRATIVE: CASE EVENT DATE: 20210217
